FAERS Safety Report 10009622 (Version 1)
Quarter: 2014Q1

REPORT INFORMATION
  Report Type: Other
  Country: US (occurrence: US)
  Receive Date: 20140312
  Receipt Date: 20140312
  Transmission Date: 20141002
  Serious: Yes (Other)
  Sender: FDA-Public Use
  Company Number: US-INCYTE CORPORATION-2012IN001895

PATIENT
  Sex: Male

DRUGS (4)
  1. JAKAFI [Suspect]
     Dosage: 5 MG, QOD
     Route: 048
     Dates: start: 20120403, end: 2012
  2. SUCRALFATE [Concomitant]
  3. EXJADE [Concomitant]
  4. OMEPRAZOLE [Concomitant]

REACTIONS (2)
  - Thrombocytopenia [Unknown]
  - Drug ineffective [Unknown]
